FAERS Safety Report 5572518-X (Version None)
Quarter: 2007Q4

REPORT INFORMATION
  Report Type: 
  Country: None (occurrence: None)
  Receive Date: 20071222
  Receipt Date: 20071212
  Transmission Date: 20080405
  Serious: Yes (Other)
  Sender: FDA-Public Use
  Company Number: AU-PFIZER INC-2007091386

PATIENT
  Sex: Male

DRUGS (3)
  1. SUTENT [Suspect]
     Indication: RENAL CELL CARCINOMA STAGE UNSPECIFIED
  2. ALL OTHER THERAPEUTIC PRODUCTS [Concomitant]
  3. LOPERAMIDE HCL [Concomitant]

REACTIONS (3)
  - DIARRHOEA [None]
  - OEDEMA [None]
  - POLYURIA [None]
